FAERS Safety Report 12525388 (Version 3)
Quarter: 2016Q3

REPORT INFORMATION
  Report Type: Spontaneous
  Country: US (occurrence: US)
  Receive Date: 20160704
  Receipt Date: 20160811
  Transmission Date: 20161109
  Serious: No
  Sender: FDA-Public Use
  Company Number: PHEH2016US016422

PATIENT
  Sex: Female

DRUGS (1)
  1. ESTRADIOL. [Suspect]
     Active Substance: ESTRADIOL
     Indication: PRODUCT USED FOR UNKNOWN INDICATION
     Dosage: 1 DF, TWICE A WEEK
     Route: 061

REACTIONS (2)
  - Drug ineffective [Unknown]
  - Product adhesion issue [Unknown]
